FAERS Safety Report 18410587 (Version 2)
Quarter: 2020Q4

REPORT INFORMATION
  Report Type: Spontaneous
  Country: CZ (occurrence: CZ)
  Receive Date: 20201021
  Receipt Date: 20201024
  Transmission Date: 20210114
  Serious: Yes (Other)
  Sender: FDA-Public Use
  Company Number: CZ-AMGEN-CZESP2020167879

PATIENT
  Age: 42 Year
  Sex: Male

DRUGS (8)
  1. NEULASTA [Suspect]
     Active Substance: PEGFILGRASTIM
     Indication: PROPHYLAXIS
     Dosage: UNK
     Route: 065
  2. PACLITAXEL. [Concomitant]
     Active Substance: PACLITAXEL
     Dosage: 250 MILLIGRAM/QM DAY 1
  3. VINBLASTINE SULFATE. [Concomitant]
     Active Substance: VINBLASTINE SULFATE
     Dosage: UNK
  4. CISPLATIN. [Concomitant]
     Active Substance: CISPLATIN
     Dosage: 25 MILLIGRAM/QM DAY 2-5
  5. IFOSFAMIDE. [Concomitant]
     Active Substance: IFOSFAMIDE
     Dosage: 1500 MILLIGRAM/QM DAY 2-5
  6. BLEOMYCIN [Concomitant]
     Active Substance: BLEOMYCIN SULFATE
     Dosage: 30 INTERNATIONAL UNIT, DAY 1, 8 AND 15
  7. ETOPOSID [Concomitant]
     Active Substance: ETOPOSIDE
     Dosage: 100 MILLIGRAM/QM DAY 1-5
  8. CISPLATIN. [Concomitant]
     Active Substance: CISPLATIN
     Dosage: 20 MILLIGRAM/QM DAY 1-5, 4 CYCLES Q3W

REACTIONS (1)
  - Testicular embryonal carcinoma [Recovered/Resolved]

NARRATIVE: CASE EVENT DATE: 201105
